FAERS Safety Report 21746157 (Version 3)
Quarter: 2022Q4

REPORT INFORMATION
  Report Type: Report from Study
  Country: US (occurrence: US)
  Receive Date: 20221219
  Receipt Date: 20221228
  Transmission Date: 20230112
  Serious: No
  Sender: FDA-Public Use
  Company Number: US-002147023-NVSC2022US292512

PATIENT
  Sex: Female
  Weight: 99.79 kg

DRUGS (1)
  1. TREPROSTINIL [Suspect]
     Active Substance: TREPROSTINIL
     Indication: Pulmonary arterial hypertension
     Dosage: 19 NG/KG/ MIN, CONT (CONTINUOUS)
     Route: 042
     Dates: start: 20221209

REACTIONS (6)
  - Condition aggravated [Unknown]
  - Back pain [Unknown]
  - Neck pain [Unknown]
  - Muscle spasms [Unknown]
  - Pain in jaw [Unknown]
  - Pain in extremity [Unknown]
